FAERS Safety Report 6739067-4 (Version None)
Quarter: 2010Q2

REPORT INFORMATION
  Report Type: 
  Country: None (occurrence: None)
  Receive Date: 20100525
  Receipt Date: 20100519
  Transmission Date: 20101027
  Serious: Yes (Hospitalization)
  Sender: FDA-Public Use
  Company Number: US-BIOGENIDEC-2009BI025499

PATIENT
  Age: 32 Year
  Sex: Female

DRUGS (2)
  1. TYSABRI [Suspect]
     Indication: MULTIPLE SCLEROSIS
     Route: 042
     Dates: start: 20080602, end: 20090715
  2. CELEXA [Concomitant]
     Route: 048

REACTIONS (3)
  - GASTROENTERITIS CRYPTOSPORIDIAL [None]
  - SUICIDE ATTEMPT [None]
  - WEIGHT DECREASED [None]
